FAERS Safety Report 14196659 (Version 1)
Quarter: 2017Q4

REPORT INFORMATION
  Report Type: Spontaneous
  Country: FR (occurrence: FR)
  Receive Date: 20171116
  Receipt Date: 20171116
  Transmission Date: 20180321
  Serious: Yes (Other)
  Sender: FDA-Public Use
  Company Number: FR-MERCK KGAA-2034391

PATIENT
  Age: 76 Year
  Sex: Male

DRUGS (13)
  1. XARELTO [Concomitant]
     Active Substance: RIVAROXABAN
  2. DIFFU K [Concomitant]
     Active Substance: POTASSIUM CHLORIDE
  3. CRESTOR [Concomitant]
     Active Substance: ROSUVASTATIN CALCIUM
  4. JANUVIA [Concomitant]
     Active Substance: SITAGLIPTIN PHOSPHATE
  5. STAGID [Concomitant]
     Active Substance: METFORMIN PAMOATE
  6. LYRICA [Concomitant]
     Active Substance: PREGABALIN
  7. BEVITINE [Concomitant]
     Active Substance: THIAMINE
  8. COVERSYL [Concomitant]
     Active Substance: PERINDOPRIL
  9. CACIT [Concomitant]
     Active Substance: CALCIUM\VITAMIN D
  10. NOVOTHYROX [Suspect]
     Active Substance: LEVOTHYROXINE SODIUM
     Indication: PRODUCT USED FOR UNKNOWN INDICATION
     Dates: start: 201704
  11. LASILIX [Concomitant]
     Active Substance: FUROSEMIDE
  12. SOTALEX [Concomitant]
     Active Substance: SOTALOL
  13. PARIT [Concomitant]

REACTIONS (15)
  - Asthenia [Unknown]
  - Dyspnoea [Unknown]
  - Pruritus [Unknown]
  - Decreased appetite [Unknown]
  - Joint swelling [Unknown]
  - Hypersomnia [Unknown]
  - Muscle spasms [Unknown]
  - Arrhythmia [Unknown]
  - Alopecia [Unknown]
  - Blood thyroid stimulating hormone increased [Unknown]
  - Abdominal pain upper [Unknown]
  - Peripheral swelling [Unknown]
  - Headache [Unknown]
  - Weight increased [Unknown]
  - Dizziness [Unknown]

NARRATIVE: CASE EVENT DATE: 2017
